FAERS Safety Report 18537417 (Version 2)
Quarter: 2020Q4

REPORT INFORMATION
  Report Type: Spontaneous
  Country: US (occurrence: US)
  Receive Date: 20201124
  Receipt Date: 20201202
  Transmission Date: 20210114
  Serious: Yes (Death, Other)
  Sender: FDA-Public Use
  Company Number: US-AUROBINDO-AUR-APL-2020-057442

PATIENT
  Age: 32 Year
  Sex: Female

DRUGS (1)
  1. MIRTAZAPINE TABLETS 30 MG [Suspect]
     Active Substance: MIRTAZAPINE
     Indication: POST-TRAUMATIC STRESS DISORDER
     Dosage: 30 MILLIGRAM, ONCE A DAY
     Route: 065
     Dates: start: 20201008, end: 20201026

REACTIONS (4)
  - Vomiting [Unknown]
  - Asphyxia [Fatal]
  - Suicidal ideation [Fatal]
  - Nervousness [Unknown]

NARRATIVE: CASE EVENT DATE: 20201009
